FAERS Safety Report 10029793 (Version 1)
Quarter: 2014Q1

REPORT INFORMATION
  Report Type: Spontaneous
  Country: US (occurrence: None)
  Receive Date: 20140319
  Receipt Date: 20140319
  Transmission Date: 20141002
  Serious: Yes (Other)
  Sender: FDA-Public Use
  Company Number: FK201400883

PATIENT
  Age: 64 Year
  Sex: Female

DRUGS (2)
  1. ETOPOSIDE [Suspect]
     Indication: SMALL CELL LUNG CANCER
  2. TEMOZOLOMIDE [Suspect]
     Indication: SMALL CELL LUNG CANCER

REACTIONS (3)
  - Lymphopenia [None]
  - Neutropenia [None]
  - Leukopenia [None]
